FAERS Safety Report 5466089-6 (Version None)
Quarter: 2007Q3

REPORT INFORMATION
  Report Type: 
  Country: None (occurrence: None)
  Receive Date: 20070919
  Receipt Date: 20070910
  Transmission Date: 20080115
  Serious: Yes (Death, Hospitalization)
  Sender: FDA-Public Use
  Company Number: 2007-02842

PATIENT
  Age: 59 Year
  Sex: Female
  Weight: 59 kg

DRUGS (3)
  1. VELCADE [Suspect]
     Indication: MULTIPLE MYELOMA
     Dosage: 1.30 MG/M2; IV BOLUS
     Route: 040
     Dates: start: 20070821
  2. DOXORUBICIN HCL [Suspect]
     Indication: MULTIPLE MYELOMA
     Dosage: 9.00 MG/M2; INTRAVENOUS
     Route: 042
  3. DEXAMETHASONE 0.5MG TAB [Suspect]
     Indication: MULTIPLE MYELOMA
     Dosage: 40.00 MG, ORAL
     Route: 048

REACTIONS (13)
  - BRONCHOPULMONARY ASPERGILLOSIS [None]
  - CULTURE STOOL POSITIVE [None]
  - CULTURE URINE POSITIVE [None]
  - DIARRHOEA [None]
  - ESCHERICHIA INFECTION [None]
  - FALL [None]
  - HAEMATOMA [None]
  - HEAD INJURY [None]
  - KLEBSIELLA INFECTION [None]
  - SEPTIC SHOCK [None]
  - SOMNOLENCE [None]
  - SPUTUM CULTURE POSITIVE [None]
  - STAPHYLOCOCCAL INFECTION [None]
